FAERS Safety Report 4320347-7 (Version None)
Quarter: 2004Q1

REPORT INFORMATION
  Report Type: 
  Country: None (occurrence: None)
  Receive Date: 20040317
  Receipt Date: 20040301
  Transmission Date: 20041129
  Serious: Yes (Hospitalization)
  Sender: FDA-Public Use
  Company Number: DSA_24045_2004

PATIENT
  Age: 89 Year
  Sex: Female

DRUGS (7)
  1. LORAZEPAM [Suspect]
     Dosage: 1 TAB QD PO
     Route: 048
  2. AMLOR [Suspect]
     Indication: ESSENTIAL HYPERTENSION
     Dosage: 10 MG QD PO
     Route: 048
     Dates: end: 20031208
  3. COTAREG [Suspect]
     Indication: ESSENTIAL HYPERTENSION
     Dosage: 1 QD PO
     Route: 048
     Dates: end: 20031211
  4. TENORMIN [Suspect]
     Indication: ESSENTIAL HYPERTENSION
     Dosage: 5 MG QD IV
     Route: 042
  5. TENORMIN [Suspect]
     Indication: ESSENTIAL HYPERTENSION
     Dosage: 2.5 MG QD PO
     Route: 048
  6. MOPRAL [Concomitant]
  7. BRICANYL [Concomitant]

REACTIONS (4)
  - BLOOD PRESSURE SYSTOLIC INCREASED [None]
  - DRUG INTERACTION [None]
  - FALL [None]
  - ORTHOSTATIC HYPOTENSION [None]
